FAERS Safety Report 5449135-5 (Version None)
Quarter: 2007Q3

REPORT INFORMATION
  Report Type: 
  Country: None (occurrence: None)
  Receive Date: 20070911
  Receipt Date: 20070905
  Transmission Date: 20080115
  Serious: Yes (Death)
  Sender: FDA-Public Use
  Company Number: US-ROXANE LABORATORIES, INC-2007-DE-05287GD

PATIENT
  Sex: Male

DRUGS (8)
  1. PREDNISONE TAB [Suspect]
     Indication: MASS
  2. PREDNISONE TAB [Suspect]
     Indication: LOWER RESPIRATORY TRACT INFLAMMATION
  3. INTERFERON GAMMA [Suspect]
     Indication: PROGRESSIVE MULTIFOCAL LEUKOENCEPHALOPATHY
     Route: 058
  4. INTERFERON GAMMA [Suspect]
     Indication: JC VIRUS INFECTION
  5. CIDOFOVIR [Suspect]
     Indication: PROGRESSIVE MULTIFOCAL LEUKOENCEPHALOPATHY
     Route: 042
  6. CIDOFOVIR [Suspect]
     Indication: JC VIRUS INFECTION
  7. IMMUNE GLOBULIN INTRAVENOUS (HUMAN) [Concomitant]
     Indication: IMMUNODEFICIENCY COMMON VARIABLE
     Route: 042
  8. BISPHOSPHONATES [Concomitant]
     Indication: PROPHYLAXIS

REACTIONS (9)
  - DRUG INEFFECTIVE [None]
  - INFLUENZA [None]
  - JC VIRUS INFECTION [None]
  - PNEUMOCYSTIS JIROVECI PNEUMONIA [None]
  - PNEUMONIA HAEMOPHILUS [None]
  - PROGRESSIVE MULTIFOCAL LEUKOENCEPHALOPATHY [None]
  - RESPIRATORY FAILURE [None]
  - SEPSIS [None]
  - SINUSITIS [None]
